FAERS Safety Report 7165615-9 (Version None)
Quarter: 2010Q4

REPORT INFORMATION
  Report Type: 
  Country: None (occurrence: None)
  Receive Date: 20101215
  Receipt Date: 20091229
  Transmission Date: 20110411
  Serious: No
  Sender: FDA-Public Use
  Company Number: US-AMGEN-KDL382879

PATIENT

DRUGS (7)
  1. ENBREL [Suspect]
     Indication: PRODUCT USED FOR UNKNOWN INDICATION
     Dosage: 50 MG, QWK
     Route: 058
  2. METHOTREXATE [Concomitant]
     Dosage: 2.5 MG, UNK
  3. FOLIC ACID [Concomitant]
     Dosage: 1 MG, UNK
  4. PROCHLORPERAZINE [Concomitant]
     Dosage: 25 MG, UNK
  5. FROVATRIPTAN [Concomitant]
     Dosage: 2.5 MG, UNK
  6. FENTANYL [Concomitant]
     Dosage: 100 A?G, UNK
  7. IBUPROFEN [Concomitant]
     Dosage: 200 MG, UNK

REACTIONS (2)
  - INJECTION SITE ERYTHEMA [None]
  - MIGRAINE [None]
